FAERS Safety Report 6709430-6 (Version None)
Quarter: 2010Q2

REPORT INFORMATION
  Report Type: 
  Country: None (occurrence: None)
  Receive Date: 20100428
  Receipt Date: 20100408
  Transmission Date: 20101027
  Serious: No
  Sender: FDA-Public Use
  Company Number: 2010-00368

PATIENT
  Age: 62 Year
  Sex: Female
  Weight: 58.9676 kg

DRUGS (1)
  1. ZICAM COLD REMEDY ZAVORS [Suspect]
     Dosage: QID - 3 DAYS
     Dates: start: 20100404, end: 20100407

REACTIONS (2)
  - AGEUSIA [None]
  - ANOSMIA [None]
